FAERS Safety Report 8763854 (Version 1)
Quarter: 2012Q4

REPORT INFORMATION
  Report Type: 
  Country: KR (occurrence: KR)
  Receive Date: 20120831
  Receipt Date: 20120831
  Transmission Date: 20130627
  Serious: Yes (Death)
  Sender: FDA-Public Use
  Company Number: PHHY2012KR075081

PATIENT
  Sex: Male

DRUGS (2)
  1. GLIVEC [Suspect]
     Indication: GASTROINTESTINAL STROMAL TUMOUR
     Dosage: 400 mg, per day
     Route: 048
     Dates: start: 20110719, end: 20120103
  2. GLIVEC [Suspect]
     Dosage: 600 mg, per day
     Route: 048
     Dates: start: 20120104

REACTIONS (1)
  - Death [Fatal]
